FAERS Safety Report 8215510-9 (Version None)
Quarter: 2012Q1

REPORT INFORMATION
  Report Type: 
  Country: None (occurrence: None)
  Receive Date: 20120229
  Receipt Date: 20111130
  Transmission Date: 20120608
  Serious: Yes (Death)
  Sender: FDA-Public Use
  Company Number: PHEH2011US01550

PATIENT
  Age: 86 Year
  Sex: Female

DRUGS (2)
  1. NEORAL [Suspect]
     Indication: LIVER TRANSPLANT
     Dosage: 50 MG, BID, ORAL
     Route: 048
  2. CYCLOSPORINE [Suspect]
     Indication: LIVER TRANSPLANT

REACTIONS (1)
  - BREAST CANCER [None]
